FAERS Safety Report 8823769 (Version 1)
Quarter: 2012Q4

REPORT INFORMATION
  Report Type: 
  Country: US (occurrence: US)
  Receive Date: 20121003
  Receipt Date: 20121003
  Transmission Date: 20130627
  Serious: No
  Sender: FDA-Public Use
  Company Number: US-ASTRAZENECA-2012SE74007

PATIENT
  Age: 63 Year
  Sex: Female
  Weight: 120.7 kg

DRUGS (13)
  1. NEXIUM [Suspect]
     Indication: GASTROOESOPHAGEAL REFLUX DISEASE
     Dosage: DAILY
     Route: 048
  2. DIAVON [Concomitant]
     Indication: RENAL DISORDER
  3. TRICOR [Concomitant]
     Indication: BLOOD CHOLESTEROL
  4. AMLODIPINE [Concomitant]
     Indication: HYPERTENSION
  5. GABASTATIN [Concomitant]
     Indication: BLOOD CHOLESTEROL
  6. PROTONIX [Concomitant]
     Indication: GASTROOESOPHAGEAL REFLUX DISEASE
  7. KLONOPIN [Concomitant]
     Indication: ANXIETY
  8. VITAMIN D [Concomitant]
     Indication: BONE DISORDER
  9. TRAMADOL [Concomitant]
     Indication: PAIN
  10. SAVELLA [Concomitant]
     Indication: FIBROMYALGIA
  11. CARAFATE [Concomitant]
     Indication: GASTROOESOPHAGEAL REFLUX DISEASE
  12. ASA [Concomitant]
  13. B12 VITAMIN [Concomitant]

REACTIONS (10)
  - Hyperchlorhydria [Unknown]
  - Bone disorder [Unknown]
  - Asthenia [Unknown]
  - Fall [Unknown]
  - Bone pain [Unknown]
  - Gastrooesophageal reflux disease [Unknown]
  - Renal disorder [Unknown]
  - Fibromyalgia [Unknown]
  - Abdominal pain upper [Unknown]
  - Drug dose omission [Unknown]
